FAERS Safety Report 5136614-3 (Version None)
Quarter: 2006Q4

REPORT INFORMATION
  Report Type: 
  Country: None (occurrence: None)
  Receive Date: 20061027
  Receipt Date: 20030226
  Transmission Date: 20070319
  Serious: Yes (Life-Threatening, Hospitalization, Disabling, Other)
  Sender: FDA-Public Use
  Company Number: JP-ABBOTT-03P-087-0212200-00

PATIENT
  Sex: Male

DRUGS (30)
  1. KALETRA [Suspect]
     Indication: HIV INFECTION
     Route: 048
     Dates: start: 20010806, end: 20020311
  2. KALETRA [Suspect]
     Route: 048
     Dates: start: 20020328, end: 20040924
  3. NORVIR [Suspect]
     Indication: HIV INFECTION
     Route: 048
     Dates: start: 20050216
  4. STAVUDINE [Suspect]
     Indication: HIV INFECTION
     Route: 048
     Dates: start: 20010806, end: 20020311
  5. ABACAVIR SULFATE [Suspect]
     Indication: HIV INFECTION
     Route: 048
     Dates: start: 20011022, end: 20020311
  6. ABACAVIR SULFATE [Suspect]
     Route: 048
     Dates: start: 20020328, end: 20041103
  7. ABACAVIR SULFATE [Suspect]
     Route: 048
     Dates: start: 20050318
  8. LAMIVUDINE [Suspect]
     Indication: HIV INFECTION
     Route: 048
     Dates: start: 20010806, end: 20011021
  9. LAMIVUDINE [Suspect]
     Dates: start: 20040927, end: 20041103
  10. NELFINAVIR MESILATE [Suspect]
     Indication: HIV INFECTION
     Route: 048
     Dates: start: 20010806, end: 20011021
  11. NEVIRAPINE [Suspect]
     Indication: HIV INFECTION
     Dates: start: 20040116, end: 20040315
  12. NEVIRAPINE [Suspect]
     Dates: start: 20040510, end: 20040914
  13. ATAZANAVIR [Suspect]
     Indication: HIV INFECTION
     Dates: start: 20040116, end: 20040924
  14. TENOFOVIR [Suspect]
     Indication: HIV INFECTION
     Dates: start: 20020328, end: 20040113
  15. NELFINAVIR [Suspect]
     Indication: HIV INFECTION
     Dates: start: 20040927, end: 20041103
  16. FOSAMPRENAVIR [Suspect]
     Indication: HIV INFECTION
     Dates: start: 20050216
  17. LAMIVUDINE W/ ABACAVIR [Suspect]
     Indication: HIV INFECTION
     Dates: start: 20050216, end: 20050317
  18. PEGINTERFERON ALFA-2B [Suspect]
     Indication: HEPATITIS C
     Route: 058
     Dates: start: 20041213, end: 20050117
  19. RIBAVIRIN [Suspect]
     Indication: HEPATITIS C
     Route: 048
     Dates: start: 20041213, end: 20050104
  20. RIBAVIRIN [Suspect]
     Route: 048
     Dates: start: 20050105, end: 20050117
  21. FACTOR IX COMPLEX [Concomitant]
     Indication: FACTOR IX DEFICIENCY
     Route: 042
     Dates: start: 20011226, end: 20020311
  22. FLUCONAZOLE [Concomitant]
     Indication: CANDIDIASIS
     Route: 048
     Dates: start: 20020215, end: 20020221
  23. FLUCONAZOLE [Concomitant]
     Indication: ORAL CANDIDIASIS
     Dates: start: 20020701
  24. BECLOMETHASONE DIPROPIONATE [Concomitant]
     Indication: STOMATITIS
     Route: 061
     Dates: start: 20020215, end: 20020221
  25. EFAVIRENZ [Concomitant]
     Indication: HIV INFECTION
     Route: 048
     Dates: start: 20050216, end: 20050328
  26. LOXOPROFEN SODIUM [Concomitant]
     Indication: PAIN IN EXTREMITY
     Dates: start: 20020819
  27. INTERFERON [Concomitant]
     Indication: DRUG USE FOR UNKNOWN INDICATION
  28. RIBAVIRIN [Concomitant]
     Route: 048
     Dates: start: 20021213, end: 20050104
  29. RIBAVIRIN [Concomitant]
     Route: 048
     Dates: start: 20050105, end: 20050117
  30. PEGINTERFERON ALFA-2B [Concomitant]
     Route: 058
     Dates: start: 20041213, end: 20050117

REACTIONS (13)
  - ABDOMINAL PAIN UPPER [None]
  - DIARRHOEA [None]
  - DYSPNOEA [None]
  - GASTROINTESTINAL DISORDER [None]
  - GUILLAIN-BARRE SYNDROME [None]
  - INFLUENZA LIKE ILLNESS [None]
  - LIPODYSTROPHY ACQUIRED [None]
  - NAUSEA [None]
  - NEPHRITIS INTERSTITIAL [None]
  - NEPHROTIC SYNDROME [None]
  - NEUROPATHY PERIPHERAL [None]
  - PAIN [None]
  - PRODUCTIVE COUGH [None]
